FAERS Safety Report 20481338 (Version 1)
Quarter: 2022Q1

REPORT INFORMATION
  Report Type: Spontaneous
  Country: JP (occurrence: JP)
  Receive Date: 20220216
  Receipt Date: 20220216
  Transmission Date: 20220424
  Serious: Yes (Hospitalization)
  Sender: FDA-Public Use
  Company Number: JP-BRISTOL-MYERS SQUIBB COMPANY-BMS-2022-022382

PATIENT
  Age: 76 Year
  Sex: Female

DRUGS (2)
  1. ELIQUIS [Suspect]
     Active Substance: APIXABAN
     Indication: Cerebrovascular accident prophylaxis
     Dosage: 2.5 MILLIGRAM, BID
     Route: 048
  2. BEPRIDIL [Suspect]
     Active Substance: BEPRIDIL
     Indication: Arrhythmia
     Dosage: UNK
     Route: 048

REACTIONS (3)
  - Electrocardiogram abnormal [Unknown]
  - Overdose [Unknown]
  - Blood pressure decreased [Unknown]
